FAERS Safety Report 8142123-X (Version None)
Quarter: 2012Q1

REPORT INFORMATION
  Report Type: 
  Country: None (occurrence: None)
  Receive Date: 20120103
  Receipt Date: 20110914
  Transmission Date: 20120608
  Serious: No
  Sender: FDA-Public Use
  Company Number: AE-2011-001304

PATIENT
  Age: 72 Year
  Sex: Female
  Weight: 50.8029 kg

DRUGS (8)
  1. HYDROCHLOROTHIAZIDE [Concomitant]
  2. INCIVEK [Suspect]
     Dosage: 2250 MG (750 MG,1 IN 8 HR),ORAL
     Route: 048
     Dates: start: 20110822
  3. AMBIEN [Concomitant]
  4. BELLADONNA (ATROPA BELLADONNA EXTRACT) [Concomitant]
  5. PROZAC [Concomitant]
  6. PEGASYS [Concomitant]
  7. RIBASPHERE [Concomitant]
  8. LISINOPRIL [Concomitant]

REACTIONS (1)
  - DIARRHOEA [None]
